FAERS Safety Report 5340049-8 (Version None)
Quarter: 2007Q2

REPORT INFORMATION
  Report Type: 
  Country: None (occurrence: None)
  Receive Date: 20070531
  Receipt Date: 20070524
  Transmission Date: 20071010
  Serious: Yes (Life-Threatening)
  Sender: FDA-Public Use
  Company Number: SG-ASTRAZENECA-2007AP03116

PATIENT
  Age: 22584 Day
  Sex: Female

DRUGS (3)
  1. IRESSA [Suspect]
     Indication: NON-SMALL CELL LUNG CANCER
     Route: 048
     Dates: start: 20070508, end: 20070521
  2. IRESSA [Suspect]
     Indication: LUNG CARCINOMA CELL TYPE UNSPECIFIED STAGE IV
     Route: 048
     Dates: start: 20070508, end: 20070521
  3. EVISTA [Concomitant]
     Indication: OSTEOPOROSIS
     Dosage: LONG-TERM THERAPY
     Route: 048

REACTIONS (1)
  - PNEUMONIA [None]
